FAERS Safety Report 4952162-5 (Version None)
Quarter: 2006Q1

REPORT INFORMATION
  Report Type: 
  Country: None (occurrence: None)
  Receive Date: 20060320
  Receipt Date: 20060310
  Transmission Date: 20060701
  Serious: Yes (Hospitalization)
  Sender: FDA-Public Use
  Company Number: OMPQ-NO-0601L-0031

PATIENT
  Age: 61 Year
  Sex: Female
  Weight: 52 kg

DRUGS (10)
  1. OMNIPAQUE 140 [Suspect]
     Indication: HERPES ZOSTER
     Dosage: SEE IMAGE
     Route: 008
     Dates: start: 20050509, end: 20050509
  2. OMNIPAQUE 140 [Suspect]
     Indication: HERPES ZOSTER
     Dosage: SEE IMAGE
     Route: 008
     Dates: start: 20050516, end: 20050516
  3. MEPIVACAINE HYDROCHLORIDE (CARBOCAIN) [Concomitant]
  4. DEXAMETHASONE (DECADRON PHOSPHATE) [Concomitant]
  5. ROPIVACAINE HYDROCHLORIDE (ANAPEINE) [Concomitant]
  6. MECOBALAMIN (METHYCOBAL) [Concomitant]
  7. AMITRIPTYLINE HYDROCHLORIDE) (TRYPTANOL) [Concomitant]
  8. ALPROSTADIL (PALUX) [Concomitant]
  9. LIDOCAINE HYDROCHLORIDE (XYLOCAINE) [Concomitant]
  10. DECADRON [Concomitant]

REACTIONS (4)
  - ACUTE GENERALISED EXANTHEMATOUS PUSTULOSIS [None]
  - DEHYDRATION [None]
  - HEPATIC FUNCTION ABNORMAL [None]
  - SKIN TEST POSITIVE [None]
